FAERS Safety Report 9531497 (Version 1)
Quarter: 2013Q2

REPORT INFORMATION
  Report Type: Spontaneous
  Country: DE (occurrence: None)
  Receive Date: 20130404
  Receipt Date: 20130404
  Transmission Date: 20140414
  Serious: Yes (Hospitalization)
  Sender: FDA-Public Use
  Company Number: E2B_00000488

PATIENT
  Age: 80 Year
  Sex: Male

DRUGS (9)
  1. SERTRALINE (UNKNOWN) (SERTRALINE) [Suspect]
     Indication: PRODUCT USED FOR UNKNOWN INDICATION
     Dosage: UNKNOWN (25 MG, UNK), ORAL
     Route: 048
  2. PANTOZOL [Suspect]
     Indication: PRODUCT USED FOR UNKNOWN INDICATION
     Dosage: UNKNOWN (40 MG, UNK), ORAL
     Route: 048
  3. INDAPAMIDE (UNKNOWN) [Suspect]
     Indication: PRODUCT USED FOR UNKNOWN INDICATION
     Dosage: UNKNOWN (1.5 MG, UNK), ORAL
     Route: 048
  4. ALDACTONE [Suspect]
     Dosage: UNKNOWN (25 MG, UNK), ORAL
     Route: 048
  5. ACETYLSALICYLIC ACID (ASS) (UNKNOWN) [Concomitant]
  6. SIMVASTATIN (UNKNOWN) (SIMVASTATIN) UNK, UNKUNK [Concomitant]
  7. MOXONIDINE (UNKNOWN) [Concomitant]
  8. FELODIPINE RAMIPRIL (DELMUNO) (UNKNOWN) [Concomitant]
  9. BISOPROLOL (UNKNOWN) [Concomitant]

REACTIONS (1)
  - Hyponatraemia [None]
